FAERS Safety Report 7777055-X (Version None)
Quarter: 2011Q3

REPORT INFORMATION
  Report Type: 
  Country: None (occurrence: None)
  Receive Date: 20110926
  Receipt Date: 20110926
  Transmission Date: 20111222
  Serious: Yes (Other)
  Sender: FDA-Public Use
  Company Number: None

PATIENT
  Age: 51 Year
  Sex: Female
  Weight: 63.956 kg

DRUGS (1)
  1. RISPERIDONE [Suspect]
     Indication: INJURY
     Dosage: 40 MILLIGRAMS
     Route: 048
     Dates: start: 20110516, end: 20110719

REACTIONS (2)
  - BIPOLAR DISORDER [None]
  - INJURY [None]
